FAERS Safety Report 13049280 (Version 1)
Quarter: 2016Q4

REPORT INFORMATION
  Report Type: Spontaneous
  Country: US (occurrence: US)
  Receive Date: 20161221
  Receipt Date: 20161221
  Transmission Date: 20170207
  Serious: No
  Sender: FDA-Public Use
  Company Number: US-BIOGEN-2016BI00331022

PATIENT
  Sex: Male

DRUGS (1)
  1. TYSABRI [Suspect]
     Active Substance: NATALIZUMAB
     Indication: MULTIPLE SCLEROSIS
     Route: 065
     Dates: start: 20070517

REACTIONS (4)
  - Dysphonia [Not Recovered/Not Resolved]
  - Dysgraphia [Unknown]
  - Musculoskeletal disorder [Not Recovered/Not Resolved]
  - Pain [Recovered/Resolved]
